FAERS Safety Report 4803800-9 (Version None)
Quarter: 2005Q3

REPORT INFORMATION
  Report Type: 
  Country: None (occurrence: None)
  Receive Date: 20050920
  Receipt Date: 20050812
  Transmission Date: 20060218
  Serious: No
  Sender: FDA-Public Use
  Company Number: US-YAMANOUCHI-YPA20050428

PATIENT
  Age: 76 Year
  Sex: Male
  Weight: 81.6475 kg

DRUGS (7)
  1. VESICARE [Suspect]
     Dosage: 5 MG QD PO
     Route: 048
     Dates: start: 20050101
  2. VESICARE [Suspect]
     Dosage: 5 MG BID PO
     Route: 048
     Dates: start: 20050101
  3. CELEBREX [Concomitant]
  4. LANOXIN [Concomitant]
  5. ALBUTEROL [Concomitant]
  6. VESICARE [Suspect]
     Dosage: 10 MG QD PO
     Route: 048
     Dates: start: 20050101, end: 20050101
  7. NEURONTIN [Concomitant]

REACTIONS (1)
  - DRUG INEFFECTIVE [None]
